FAERS Safety Report 5587935-1 (Version None)
Quarter: 2008Q1

REPORT INFORMATION
  Report Type: 
  Country: None (occurrence: None)
  Receive Date: 20080111
  Receipt Date: 20071008
  Transmission Date: 20080703
  Serious: No
  Sender: FDA-Public Use
  Company Number: US-KINGPHARMUSA00001-K200701314

PATIENT

DRUGS (6)
  1. INTAL [Suspect]
     Indication: ASTHMA
     Dosage: 6 PUFFS, QD
  2. ABILIFY [Concomitant]
     Dosage: 7.5 TO 5 MG MG, QD
  3. PROPANOLOL  /00030001/ [Concomitant]
  4. ZOLOFT [Concomitant]
     Dosage: 150 TO 50 MG, UNK
  5. WELLBUTRIN [Concomitant]
  6. PREMPRO [Concomitant]

REACTIONS (1)
  - PEAK EXPIRATORY FLOW RATE DECREASED [None]
